FAERS Safety Report 14240951 (Version 5)
Quarter: 2018Q2

REPORT INFORMATION
  Report Type: Report from Study
  Country: US (occurrence: US)
  Receive Date: 20171130
  Receipt Date: 20180430
  Transmission Date: 20180711
  Serious: Yes (Hospitalization, Other)
  Sender: FDA-Public Use
  Company Number: US-ACTELION-A-US2017-163437

PATIENT
  Age: 69 Year
  Sex: Female
  Weight: 72.56 kg

DRUGS (2)
  1. XARELTO [Concomitant]
     Active Substance: RIVAROXABAN
  2. OPSUMIT [Suspect]
     Active Substance: MACITENTAN
     Indication: PULMONARY HYPERTENSION
     Dosage: 10 MG, QD
     Route: 048
     Dates: start: 20160920

REACTIONS (10)
  - Diarrhoea [Unknown]
  - Pain [Unknown]
  - Pain in jaw [Unknown]
  - Vomiting [Unknown]
  - Malaise [Unknown]
  - Headache [Unknown]
  - Pancreatic neoplasm [Unknown]
  - Splenectomy [Unknown]
  - Bronchitis [Unknown]
  - Pancreatectomy [Unknown]

NARRATIVE: CASE EVENT DATE: 201711
